FAERS Safety Report 21393751 (Version 1)
Quarter: 2022Q3

REPORT INFORMATION
  Report Type: Other
  Country: GB (occurrence: GB)
  Receive Date: 20220930
  Receipt Date: 20220930
  Transmission Date: 20221026
  Serious: Yes (Other)
  Sender: FDA-Public Use
  Company Number: None

PATIENT
  Age: 70 Year
  Sex: Female
  Weight: 127 kg

DRUGS (10)
  1. NAPROXEN [Suspect]
     Active Substance: NAPROXEN
     Indication: Ill-defined disorder
     Dosage: 1 TABLETS, BID (TAKE ONE TABLET TWICE A DAY)
     Route: 065
     Dates: start: 20220610
  2. NAPROXEN [Suspect]
     Active Substance: NAPROXEN
     Dosage: UNK
     Route: 065
     Dates: start: 20220923
  3. AMITRIPTYLINE HYDROCHLORIDE [Concomitant]
     Active Substance: AMITRIPTYLINE HYDROCHLORIDE
     Indication: Ill-defined disorder
     Dosage: AT BED TIME (TAKE TWO TABLETS AT NIGHT)
     Route: 065
     Dates: start: 20220107
  4. ATORVASTATIN [Concomitant]
     Active Substance: ATORVASTATIN
     Indication: Ill-defined disorder
     Dosage: 1 TABLETS EACH DAY (TAKE ONE TABLET EACH DAY)
     Route: 065
     Dates: start: 20220704
  5. COCODAMOL [Concomitant]
     Active Substance: ACETAMINOPHEN\CODEINE PHOSPHATE
     Indication: Ill-defined disorder
     Dosage: UNK (TAKE ONE TO TWO TABLETS UP TO FOUR TIMES A DAY.)
     Route: 065
     Dates: start: 20220816, end: 20220913
  6. LANSOPRAZOLE [Concomitant]
     Active Substance: LANSOPRAZOLE
     Indication: Ill-defined disorder
     Dosage: UNK, QD (TAKE ONE CAPSULE ONCE A DAY)
     Route: 065
     Dates: start: 20220610
  7. LEVOTHYROXINE [Concomitant]
     Active Substance: LEVOTHYROXINE
     Indication: Ill-defined disorder
     Dosage: 1 TABLETS, EVERY MORNING
     Route: 065
     Dates: start: 20220107
  8. NITROFURANTOIN [Concomitant]
     Active Substance: NITROFURANTOIN
     Indication: Ill-defined disorder
     Dosage: UNCOMPLICATED UTI WOMEN- TAKE ONE CAPSULE TWICE.
     Route: 065
     Dates: start: 20220718, end: 20220721
  9. PIROXICAM [Concomitant]
     Active Substance: PIROXICAM
     Indication: Ill-defined disorder
     Dosage: UNK (APPLY 3-4 TIMES DAILY AS DIRECTED)
     Route: 065
     Dates: start: 20220107
  10. TRIMETHOPRIM [Concomitant]
     Active Substance: TRIMETHOPRIM
     Indication: Ill-defined disorder
     Dosage: 1 TABLETS, BID (TAKE ONE TABLET TWICE DAILY FOR 5 DAYS)
     Route: 065
     Dates: start: 20220725, end: 20220730

REACTIONS (1)
  - Renal impairment [Recovered/Resolved]

NARRATIVE: CASE EVENT DATE: 20220923
